FAERS Safety Report 15327302 (Version 1)
Quarter: 2018Q3

REPORT INFORMATION
  Report Type: Spontaneous
  Country: DK (occurrence: DK)
  Receive Date: 20180828
  Receipt Date: 20180828
  Transmission Date: 20181010
  Serious: Yes (Other)
  Sender: FDA-Public Use
  Company Number: DK-ELI_LILLY_AND_COMPANY-DK201808009769

PATIENT
  Age: 79 Year
  Sex: Male

DRUGS (2)
  1. CIALIS [Suspect]
     Active Substance: TADALAFIL
     Indication: ERECTILE DYSFUNCTION
     Dosage: .5 DF, UNK
     Route: 048
     Dates: start: 20160921, end: 201802
  2. TADALAFIL [Suspect]
     Active Substance: TADALAFIL
     Indication: ERECTILE DYSFUNCTION
     Dosage: .5 DF, UNK
     Route: 048
     Dates: start: 201802, end: 201807

REACTIONS (4)
  - Penile haemorrhage [Recovered/Resolved]
  - Haematospermia [Recovered/Resolved]
  - Penile haemorrhage [Not Recovered/Not Resolved]
  - Haematospermia [Not Recovered/Not Resolved]

NARRATIVE: CASE EVENT DATE: 201801
